FAERS Safety Report 5122603-1 (Version None)
Quarter: 2006Q4

REPORT INFORMATION
  Report Type: 
  Country: None (occurrence: None)
  Receive Date: 20061004
  Receipt Date: 20060927
  Transmission Date: 20070319
  Serious: Yes (Other)
  Sender: FDA-Public Use
  Company Number: B0438439A

PATIENT
  Age: 56 Year
  Sex: Male

DRUGS (2)
  1. LITHIUM CARBONATE (FORMULATION UNKNOWN) (GENERIC) (LITHIUM CARBONATE) [Suspect]
     Indication: MANIA
  2. AMILORIDE HCL AND HYDROCHLOROTHIAZIDE [Concomitant]

REACTIONS (2)
  - NEPHROGENIC DIABETES INSIPIDUS [None]
  - SLEEP DISORDER [None]
